FAERS Safety Report 4902095-5 (Version None)
Quarter: 2006Q1

REPORT INFORMATION
  Report Type: 
  Country: None (occurrence: None)
  Receive Date: 20060206
  Receipt Date: 20060126
  Transmission Date: 20060701
  Serious: Yes (Other)
  Sender: FDA-Public Use
  Company Number: US-JNJFOC-20060105837

PATIENT
  Sex: Male
  Weight: 100.7 kg

DRUGS (8)
  1. REMICADE [Suspect]
     Dosage: 5 VIALS
     Route: 042
  2. REMICADE [Suspect]
     Dosage: 5 VIALS
     Route: 042
  3. REMICADE [Suspect]
     Indication: CROHN'S DISEASE
     Dosage: 5 VIALS
     Route: 042
  4. PREDNISONE [Concomitant]
  5. IMURAN [Concomitant]
  6. ASACOL [Concomitant]
  7. ANTIBIOTICS [Concomitant]
  8. LEVAQUIN [Concomitant]

REACTIONS (6)
  - CROHN'S DISEASE [None]
  - FATIGUE [None]
  - HEART RATE INCREASED [None]
  - LABILE BLOOD PRESSURE [None]
  - LUNG DISORDER [None]
  - SINUSITIS [None]
